FAERS Safety Report 11338041 (Version 2)
Quarter: 2015Q3

REPORT INFORMATION
  Report Type: Spontaneous
  Country: US (occurrence: US)
  Receive Date: 20150803
  Receipt Date: 20150803
  Transmission Date: 20151125
  Serious: Yes (Hospitalization, Disabling, Other)
  Sender: FDA-Public Use
  Company Number: US-ELI_LILLY_AND_COMPANY-US200911005472

PATIENT
  Age: 38 Year
  Sex: Male
  Weight: 184.58 kg

DRUGS (9)
  1. ZYPREXA [Suspect]
     Active Substance: OLANZAPINE
     Indication: SCHIZOPHRENIA, PARANOID TYPE
     Dosage: 15 MG, DAILY (1/D)
     Route: 048
     Dates: start: 1998
  2. FLUOXETINE [Concomitant]
     Active Substance: FLUOXETINE\FLUOXETINE HYDROCHLORIDE
     Dates: start: 2004
  3. NICOTINE. [Concomitant]
     Active Substance: NICOTINE
     Dosage: 14 MG, DAILY (1/D)
     Dates: start: 20041129
  4. STRATTERA [Suspect]
     Active Substance: ATOMOXETINE HYDROCHLORIDE
     Indication: ATTENTION DEFICIT/HYPERACTIVITY DISORDER
     Dosage: 120 MG, DAILY (1/D)
     Dates: start: 20060523
  5. IBUPROFEN. [Concomitant]
     Active Substance: IBUPROFEN
     Indication: PAIN
     Dosage: 800 MG, 3/D
     Dates: start: 20040811
  6. NICOTINE. [Concomitant]
     Active Substance: NICOTINE
     Indication: SMOKING CESSATION THERAPY
     Dosage: 21 MG, DAILY (1/D)
     Route: 062
     Dates: start: 20020121
  7. LOPRESSOR [Concomitant]
     Active Substance: METOPROLOL TARTRATE
     Dates: start: 2002
  8. HYDROCHLORZIDE [Concomitant]
     Active Substance: HYDROCHLOROTHIAZIDE
     Dates: start: 2005, end: 2006
  9. ZYPREXA [Suspect]
     Active Substance: OLANZAPINE
     Dosage: 7.5 MG, DAILY (1/D)
     Route: 048
     Dates: start: 200206, end: 200508

REACTIONS (11)
  - Diabetic ketoacidosis [Recovered/Resolved]
  - Hypertriglyceridaemia [Unknown]
  - Diabetes mellitus [Unknown]
  - Constipation [Unknown]
  - Obesity [Unknown]
  - Erectile dysfunction [Unknown]
  - Feeling abnormal [Recovered/Resolved]
  - Blood cholesterol increased [Unknown]
  - Metabolic disorder [Unknown]
  - Weight increased [Unknown]
  - Hypertension [Unknown]

NARRATIVE: CASE EVENT DATE: 2002
